FAERS Safety Report 13178405 (Version 1)
Quarter: 2017Q1

REPORT INFORMATION
  Report Type: Spontaneous
  Country: US (occurrence: US)
  Receive Date: 20170201
  Receipt Date: 20170201
  Transmission Date: 20170428
  Serious: No
  Sender: FDA-Public Use
  Company Number: None

PATIENT
  Age: 73 Year
  Sex: Male

DRUGS (20)
  1. TYLENOL [Concomitant]
     Active Substance: ACETAMINOPHEN
  2. FUROSEMIDE. [Concomitant]
     Active Substance: FUROSEMIDE
  3. TRIAMCINOLON [Concomitant]
  4. ATENOLOL. [Concomitant]
     Active Substance: ATENOLOL
  5. GABAPENTIN. [Concomitant]
     Active Substance: GABAPENTIN
  6. LISINOPRIL. [Concomitant]
     Active Substance: LISINOPRIL
  7. TRIAMTERENE. [Concomitant]
     Active Substance: TRIAMTERENE
  8. PREVACID [Concomitant]
     Active Substance: LANSOPRAZOLE
  9. FOLIC ACID. [Concomitant]
     Active Substance: FOLIC ACID
  10. METHOTREXATE. [Concomitant]
     Active Substance: METHOTREXATE
  11. TRAMADOL HCL [Concomitant]
     Active Substance: TRAMADOL HYDROCHLORIDE
  12. SCHIFF MOVE FREE [Concomitant]
     Active Substance: CHONDROITIN SULFATE A\GLUCOSAMINE
  13. GLUTAMINE [Concomitant]
     Active Substance: GLUTAMINE
  14. ASCORBIC ACD [Concomitant]
  15. CELECOXIB. [Concomitant]
     Active Substance: CELECOXIB
  16. CALCIUM SOFT CHW CHEWS [Concomitant]
  17. ALLOPURINOL. [Concomitant]
     Active Substance: ALLOPURINOL
  18. OXYCODONE [Concomitant]
     Active Substance: OXYCODONE
  19. ASPIRIN. [Concomitant]
     Active Substance: ASPIRIN
  20. XELJANZ [Suspect]
     Active Substance: TOFACITINIB CITRATE
     Indication: RHEUMATOID ARTHRITIS
     Route: 048
     Dates: start: 20161201

REACTIONS (4)
  - Neck surgery [None]
  - Complication associated with device [None]
  - Nerve compression [None]
  - Musculoskeletal disorder [None]

NARRATIVE: CASE EVENT DATE: 201612
